FAERS Safety Report 14305835 (Version 2)
Quarter: 2018Q1

REPORT INFORMATION
  Report Type: Report from Study
  Country: US (occurrence: US)
  Receive Date: 20171219
  Receipt Date: 20180105
  Transmission Date: 20180509
  Serious: Yes (Hospitalization, Other)
  Sender: FDA-Public Use
  Company Number: US-BAUSCH-BL-2017-034549

PATIENT
  Sex: Male
  Weight: 106.69 kg

DRUGS (1)
  1. XIFAXAN [Suspect]
     Active Substance: RIFAXIMIN
     Indication: PRODUCT USED FOR UNKNOWN INDICATION
     Dosage: QTY 180
     Route: 048

REACTIONS (4)
  - Schizophrenia [Unknown]
  - Urinary tract infection [Unknown]
  - Pyrexia [Unknown]
  - Sepsis [Unknown]
